FAERS Safety Report 10861749 (Version 1)
Quarter: 2015Q1

REPORT INFORMATION
  Report Type: Spontaneous
  Country: US (occurrence: US)
  Receive Date: 20150224
  Receipt Date: 20150224
  Transmission Date: 20150721
  Serious: No
  Sender: FDA-Public Use
  Company Number: US-PFIZER INC-2015062663

PATIENT
  Age: 48 Year
  Sex: Female
  Weight: 63 kg

DRUGS (7)
  1. ADVAIR DISKUS [Concomitant]
     Active Substance: FLUTICASONE PROPIONATE\SALMETEROL XINAFOATE
     Indication: COUGH
     Dosage: 1 PUFF, 2X/DAY
  2. SINGULAIR [Concomitant]
     Active Substance: MONTELUKAST SODIUM
     Indication: COUGH
     Dosage: 10 MG, 1X/DAY (AT BEDTIME OR DINNER)
  3. ALLEGRA [Concomitant]
     Active Substance: FEXOFENADINE HYDROCHLORIDE
     Indication: RHINITIS ALLERGIC
     Dosage: 180 MG, UNK
  4. QVAR [Concomitant]
     Active Substance: BECLOMETHASONE DIPROPIONATE
     Indication: COUGH
     Dosage: 80 ?G, UNK(80 MCG/ACT AERS)(2 PUFFS)
  5. XOLAIR [Concomitant]
     Active Substance: OMALIZUMAB
     Dosage: UNK
     Dates: start: 20140616
  6. NEBULIZED SALINE [Concomitant]
     Dosage: UNK, AS NEEDED
  7. TESSALON [Suspect]
     Active Substance: BENZONATATE
     Indication: COUGH
     Dosage: 200 MG, 3X/DAY(SWALLOW 2 CAPS TID)

REACTIONS (3)
  - Drug tolerance [Unknown]
  - Cough [Unknown]
  - Fatigue [Unknown]
